FAERS Safety Report 13554448 (Version 1)
Quarter: 2017Q2

REPORT INFORMATION
  Report Type: Spontaneous
  Country: US (occurrence: US)
  Receive Date: 20170517
  Receipt Date: 20170517
  Transmission Date: 20170830
  Serious: Yes (Hospitalization)
  Sender: FDA-Public Use
  Company Number: US-PURDUE-GBR-2017-0045136

PATIENT
  Age: 54 Year
  Sex: Male

DRUGS (6)
  1. CLONIDINE. [Concomitant]
     Active Substance: CLONIDINE
     Indication: MYALGIA
  2. CLONIDINE. [Concomitant]
     Active Substance: CLONIDINE
     Indication: TEMPOROMANDIBULAR JOINT SYNDROME
     Dosage: 15 MCG, SINGLE
     Route: 014
  3. NON-PMN MORPHINE SULFATE [Suspect]
     Active Substance: MORPHINE SULFATE
     Indication: MYALGIA
  4. NON-PMN MORPHINE SULFATE [Suspect]
     Active Substance: MORPHINE SULFATE
     Indication: TEMPOROMANDIBULAR JOINT SYNDROME
     Dosage: UNK UNK, SEE TEXT
     Route: 042
  5. ROPIVACAINE [Concomitant]
     Active Substance: ROPIVACAINE
     Indication: TEMPOROMANDIBULAR JOINT SYNDROME
     Dosage: 2 ML, SINGLE
     Route: 014
  6. ROPIVACAINE [Concomitant]
     Active Substance: ROPIVACAINE
     Indication: MYALGIA

REACTIONS (2)
  - Sedation [Unknown]
  - Respiratory failure [Unknown]
